FAERS Safety Report 5538187-X (Version None)
Quarter: 2007Q4

REPORT INFORMATION
  Report Type: 
  Country: None (occurrence: None)
  Receive Date: 20071207
  Receipt Date: 20071130
  Transmission Date: 20080405
  Serious: Yes (Death)
  Sender: FDA-Public Use
  Company Number: DE-PFIZER INC-2007101626

PATIENT
  Age: 60 Year
  Sex: Male

DRUGS (1)
  1. XALATAN [Suspect]
     Route: 047

REACTIONS (2)
  - DEATH [None]
  - DRUG INTOLERANCE [None]
